FAERS Safety Report 15553404 (Version 1)
Quarter: 2018Q4

REPORT INFORMATION
  Report Type: Spontaneous
  Country: FR (occurrence: FR)
  Receive Date: 20181026
  Receipt Date: 20181026
  Transmission Date: 20190205
  Serious: Yes (Hospitalization)
  Sender: FDA-Public Use
  Company Number: FR-TEVA-2018-FR-969141

PATIENT
  Age: 27 Year
  Sex: Female
  Weight: 73 kg

DRUGS (6)
  1. MESNA. [Concomitant]
     Active Substance: MESNA
     Indication: PREMEDICATION
     Dosage: J1 OF THE CURE N ? 2 ON 04/09/2018
     Route: 042
     Dates: start: 20180814, end: 20180907
  2. ETOPOSIDE. [Concomitant]
     Active Substance: ETOPOSIDE
     Indication: HODGKIN^S DISEASE
     Dosage: 354 MILLIGRAM DAILY; J1, J2, J3 OF THE CURE N ? 2 ON 04/09/2018
     Route: 042
     Dates: start: 20180814, end: 20180907
  3. CHLORHYDRATE DE DOXORUBICINE [Suspect]
     Active Substance: DOXORUBICIN HYDROCHLORIDE
     Indication: HODGKIN^S DISEASE
     Dosage: J1 OF THE CURE N ? 2 ON 04/09/2018
     Route: 042
     Dates: start: 20180814, end: 20180905
  4. PROCARBAZINE (CHLORHYDRATE DE) [Suspect]
     Active Substance: PROCARBAZINE HYDROCHLORIDE
     Indication: HODGKIN^S DISEASE
     Route: 048
     Dates: start: 20180814, end: 20180907
  5. CYCLOPHOSPHAMIDE. [Concomitant]
     Active Substance: CYCLOPHOSPHAMIDE
     Indication: HODGKIN^S DISEASE
     Dosage: J1 OF THE CURE N ? 2 ON 04/09/2018
     Route: 042
     Dates: start: 20180814, end: 20180907
  6. BACTRIM [Suspect]
     Active Substance: SULFAMETHOXAZOLE\TRIMETHOPRIM
     Indication: PROPHYLAXIS
     Route: 048
     Dates: start: 20180814, end: 20180904

REACTIONS (1)
  - Dermatitis exfoliative generalised [Recovered/Resolved]

NARRATIVE: CASE EVENT DATE: 20180904
